FAERS Safety Report 11518476 (Version 2)
Quarter: 2015Q4

REPORT INFORMATION
  Report Type: Spontaneous
  Country: US (occurrence: US)
  Receive Date: 20150917
  Receipt Date: 20151013
  Transmission Date: 20160304
  Serious: Yes (Other)
  Sender: FDA-Public Use
  Company Number: US-009507513-1509USA008628

PATIENT
  Age: 19 Year
  Sex: Female

DRUGS (1)
  1. ETONOGESTREL IMPLANT- UNKNOWN [Suspect]
     Active Substance: ETONOGESTREL
     Route: 059

REACTIONS (3)
  - Implant site nerve injury [Recovered/Resolved]
  - Incorrect drug administration duration [Unknown]
  - Device difficult to use [Recovered/Resolved]
